FAERS Safety Report 25174836 (Version 1)
Quarter: 2025Q2

REPORT INFORMATION
  Report Type: Spontaneous
  Country: CN (occurrence: CN)
  Receive Date: 20250408
  Receipt Date: 20250408
  Transmission Date: 20250717
  Serious: Yes (Hospitalization)
  Sender: PFIZER
  Company Number: CN-PFIZER INC-PV202500040892

PATIENT
  Age: 79 Year
  Sex: Male
  Weight: 52 kg

DRUGS (2)
  1. ABROCITINIB [Suspect]
     Active Substance: ABROCITINIB
     Indication: Gastric cancer
     Dosage: 0.1 G, 1X/DAY
     Route: 048
     Dates: start: 20250324, end: 20250324
  2. ABROCITINIB [Suspect]
     Active Substance: ABROCITINIB
     Indication: Chemotherapy

REACTIONS (3)
  - White blood cell count decreased [Recovering/Resolving]
  - Asthenia [Recovering/Resolving]
  - Off label use [Unknown]

NARRATIVE: CASE EVENT DATE: 20250324
